FAERS Safety Report 5065773-6 (Version None)
Quarter: 2006Q3

REPORT INFORMATION
  Report Type: 
  Country: None (occurrence: None)
  Receive Date: 20060719
  Receipt Date: 20050707
  Transmission Date: 20061208
  Serious: No
  Sender: FDA-Public Use
  Company Number: 05P-163-0305117-00

PATIENT
  Sex: 0

DRUGS (4)
  1. NORVIR [Suspect]
     Indication: DRUG USE FOR UNKNOWN INDICATION
  2. FOSAMPRENAVIR [Suspect]
     Indication: DRUG USE FOR UNKNOWN INDICATION
     Dosage: ORAL
     Route: 048
  3. EFAVIRENZ [Concomitant]
  4. TRUVADA [Concomitant]

REACTIONS (1)
  - LIVER FUNCTION TEST ABNORMAL [None]
